FAERS Safety Report 6618242-3 (Version None)
Quarter: 2010Q1

REPORT INFORMATION
  Report Type: 
  Country: None (occurrence: None)
  Receive Date: 20100308
  Receipt Date: 20100301
  Transmission Date: 20100710
  Serious: Yes (Other)
  Sender: FDA-Public Use
  Company Number: US-JNJFOC-20100301103

PATIENT
  Sex: Female

DRUGS (4)
  1. DURAGESIC-100 [Suspect]
     Indication: RADICULAR PAIN
     Route: 062
  2. DURAGESIC-100 [Suspect]
     Route: 062
  3. TYLENOL-500 [Concomitant]
     Indication: PAIN
     Route: 048
  4. DILAUDID [Concomitant]
     Indication: PAIN
     Route: 048

REACTIONS (5)
  - BRONCHITIS [None]
  - CHEST DISCOMFORT [None]
  - COMPLEX REGIONAL PAIN SYNDROME [None]
  - DYSPNOEA [None]
  - SPINAL COLUMN STENOSIS [None]
